FAERS Safety Report 7817946-4 (Version None)
Quarter: 2011Q4

REPORT INFORMATION
  Report Type: 
  Country: None (occurrence: None)
  Receive Date: 20111017
  Receipt Date: 20111006
  Transmission Date: 20120403
  Serious: Yes (Hospitalization)
  Sender: FDA-Public Use
  Company Number: NZ-GLAXOSMITHKLINE-B0685800A

PATIENT
  Sex: Female
  Weight: 65 kg

DRUGS (16)
  1. RIVAROXABAN [Suspect]
     Indication: ACUTE CORONARY SYNDROME
     Dosage: 5MG TWICE PER DAY
     Route: 048
     Dates: start: 20091208
  2. CODEINE SULFATE [Concomitant]
  3. GTN SPRAY [Concomitant]
  4. CLOPIDOGREL [Concomitant]
     Indication: ACUTE CORONARY SYNDROME
     Route: 065
  5. DOMPERIDONE [Concomitant]
  6. AUGMENTIN '125' [Suspect]
     Indication: PRODUCT USED FOR UNKNOWN INDICATION
     Route: 065
  7. ASPIRIN [Concomitant]
     Indication: ACUTE CORONARY SYNDROME
  8. CILAZAPRIL [Concomitant]
  9. IMOVANE [Concomitant]
  10. SIMVASTATIN [Concomitant]
  11. METOPROLOL TARTRATE [Concomitant]
  12. PANTOPRAZOLE [Concomitant]
  13. ACETAMINOPHEN [Concomitant]
  14. ZYBAN [Concomitant]
  15. NICOTINE [Concomitant]
  16. ONDANSETRON [Concomitant]

REACTIONS (1)
  - ABDOMINAL PAIN UPPER [None]
